FAERS Safety Report 10262254 (Version 1)
Quarter: 2014Q2

REPORT INFORMATION
  Report Type: Spontaneous
  Country: US (occurrence: US)
  Receive Date: 20140626
  Receipt Date: 20140626
  Transmission Date: 20141212
  Serious: Yes (Hospitalization)
  Sender: FDA-Public Use
  Company Number: PHHY2014US074610

PATIENT
  Age: 78 Year
  Sex: Female

DRUGS (2)
  1. SALBUTAMOL [Suspect]
     Indication: DYSPNOEA
     Dosage: 2 DF, QD AS NEEDED
     Route: 055
  2. SALBUTAMOL [Suspect]
     Dosage: , 4 TIME IN 12 HOURS
     Route: 055

REACTIONS (12)
  - Stress cardiomyopathy [Recovered/Resolved]
  - Dyspnoea [Recovered/Resolved]
  - Chest pain [Recovered/Resolved]
  - Chest discomfort [Recovered/Resolved]
  - Electrocardiogram ST segment elevation [Recovered/Resolved]
  - QRS axis abnormal [Recovered/Resolved]
  - Acute coronary syndrome [Recovered/Resolved]
  - Acute myocardial infarction [Recovered/Resolved]
  - Coronary artery stenosis [Recovered/Resolved]
  - Ejection fraction decreased [Recovered/Resolved]
  - Left ventricular dysfunction [Recovered/Resolved]
  - Overdose [Unknown]
